FAERS Safety Report 11625746 (Version 5)
Quarter: 2016Q1

REPORT INFORMATION
  Report Type: Spontaneous
  Country: US (occurrence: US)
  Receive Date: 20151013
  Receipt Date: 20160219
  Transmission Date: 20160525
  Serious: No
  Sender: FDA-Public Use
  Company Number: US-ASTRAZENECA-2012SE74495

PATIENT
  Age: 61 Year
  Sex: Female
  Weight: 76.2 kg

DRUGS (35)
  1. ABILIFY [Concomitant]
     Active Substance: ARIPIPRAZOLE
  2. CELEBREX [Concomitant]
     Active Substance: CELECOXIB
  3. LEXAPRO [Concomitant]
     Active Substance: ESCITALOPRAM OXALATE
     Dates: start: 2003, end: 201403
  4. AMIODARONE [Concomitant]
     Active Substance: AMIODARONE
     Route: 048
     Dates: start: 20151005
  5. PREVACID [Concomitant]
     Active Substance: LANSOPRAZOLE
     Indication: GASTROOESOPHAGEAL REFLUX DISEASE
     Dates: start: 200902, end: 201004
  6. NAMENDA [Concomitant]
     Active Substance: MEMANTINE HYDROCHLORIDE
     Dates: start: 20150314
  7. ENALAPRIL MALEATE. [Concomitant]
     Active Substance: ENALAPRIL MALEATE
     Route: 048
     Dates: start: 20151005
  8. STARLIX [Concomitant]
     Active Substance: NATEGLINIDE
     Dates: start: 20111220
  9. MECLIZINE [Concomitant]
     Active Substance: MECLIZINE HYDROCHLORIDE
  10. ADVAIR HFA [Concomitant]
     Active Substance: FLUTICASONE PROPIONATE\SALMETEROL XINAFOATE
  11. PAROXETINE/PAXIL [Concomitant]
     Dates: start: 20121113
  12. CRESTOR [Suspect]
     Active Substance: ROSUVASTATIN CALCIUM
     Indication: BLOOD CHOLESTEROL INCREASED
     Route: 048
     Dates: start: 2008
  13. CRESTOR [Suspect]
     Active Substance: ROSUVASTATIN CALCIUM
     Indication: BLOOD CHOLESTEROL INCREASED
     Route: 048
     Dates: start: 20140303
  14. HYDROCORTISONE. [Concomitant]
     Active Substance: HYDROCORTISONE
     Indication: INFLAMMATION
     Dates: start: 201107, end: 201111
  15. AMITIZA [Concomitant]
     Active Substance: LUBIPROSTONE
  16. XOPENEX [Concomitant]
     Active Substance: LEVALBUTEROL HYDROCHLORIDE
  17. GLIBENCLAMIDE, METFORMIN [Concomitant]
     Active Substance: GLYBURIDE\METFORMIN
     Dates: start: 2003, end: 201403
  18. CRESTOR [Suspect]
     Active Substance: ROSUVASTATIN CALCIUM
     Indication: BLOOD CHOLESTEROL INCREASED
     Route: 048
     Dates: start: 20091222
  19. NEXIUM [Concomitant]
     Active Substance: ESOMEPRAZOLE MAGNESIUM
     Indication: GASTROOESOPHAGEAL REFLUX DISEASE
     Dates: start: 201205
  20. NORVASC [Concomitant]
     Active Substance: AMLODIPINE BESYLATE
  21. JANUVIA [Concomitant]
     Active Substance: SITAGLIPTIN PHOSPHATE
     Dates: start: 20151005
  22. ATENOLOL. [Concomitant]
     Active Substance: ATENOLOL
     Route: 048
     Dates: start: 20141122
  23. ATENOLOL. [Concomitant]
     Active Substance: ATENOLOL
     Route: 048
     Dates: start: 2003, end: 201403
  24. ELMIRON [Concomitant]
     Active Substance: PENTOSAN POLYSULFATE SODIUM
  25. VESICARE [Concomitant]
     Active Substance: SOLIFENACIN SUCCINATE
     Dates: start: 20121113
  26. WELLBUTRIN [Concomitant]
     Active Substance: BUPROPION HYDROCHLORIDE
     Dates: start: 2003, end: 201403
  27. DIOVAN [Concomitant]
     Active Substance: VALSARTAN
  28. NOVOLIN [Concomitant]
     Active Substance: INSULIN HUMAN
  29. RESTASIS [Concomitant]
     Active Substance: CYCLOSPORINE
     Dates: start: 2003, end: 201403
  30. ZOLPIDEM [Concomitant]
     Active Substance: ZOLPIDEM\ZOLPIDEM TARTRATE
     Dates: start: 2003, end: 201403
  31. CRESTOR [Suspect]
     Active Substance: ROSUVASTATIN CALCIUM
     Indication: BLOOD CHOLESTEROL INCREASED
     Route: 048
     Dates: start: 200912
  32. METOPROLOL SUCCINATE. [Concomitant]
     Active Substance: METOPROLOL SUCCINATE
     Indication: HYPERTENSION
     Dates: start: 201010
  33. STARLIX [Concomitant]
     Active Substance: NATEGLINIDE
     Dates: start: 2003, end: 201403
  34. TRAZODONE [Concomitant]
     Active Substance: TRAZODONE HYDROCHLORIDE
     Dates: start: 2003, end: 201403
  35. ASPIRIN. [Concomitant]
     Active Substance: ASPIRIN
     Dates: start: 2003, end: 201403

REACTIONS (4)
  - Essential hypertension [Not Recovered/Not Resolved]
  - Coronary artery disease [Not Recovered/Not Resolved]
  - Type 2 diabetes mellitus [Not Recovered/Not Resolved]
  - Gastrooesophageal reflux disease [Not Recovered/Not Resolved]

NARRATIVE: CASE EVENT DATE: 2008
